FAERS Safety Report 4962241-4 (Version None)
Quarter: 2006Q2

REPORT INFORMATION
  Report Type: 
  Country: None (occurrence: None)
  Receive Date: 20060404
  Receipt Date: 20060210
  Transmission Date: 20061013
  Serious: Yes (Other)
  Sender: FDA-Public Use
  Company Number: PHBS2006JP02393

PATIENT
  Age: 65 Year
  Sex: Male
  Weight: 68 kg

DRUGS (10)
  1. TEGRETOL [Suspect]
     Indication: TRIGEMINAL NEURALGIA
     Dosage: 100 MG, TID
     Route: 048
     Dates: start: 20060123, end: 20060201
  2. URSO [Concomitant]
     Indication: ALCOHOLIC LIVER DISEASE
     Dosage: 350 MG/DAY
     Route: 048
  3. NORVASC [Concomitant]
     Indication: HYPERTENSION
     Dosage: 5 MG/DAY
     Route: 048
  4. OLMETEC [Concomitant]
     Dosage: 20 MG/DAY
     Route: 048
  5. CLARITHROMYCIN [Suspect]
     Indication: PLEURISY
     Dosage: 200 MG, BID
     Route: 048
     Dates: start: 20060107, end: 20060112
  6. LASIX [Suspect]
     Indication: PLEURAL EFFUSION
     Dosage: 40 MG, BID
     Route: 048
     Dates: start: 20060107, end: 20060118
  7. ALDACTONE [Suspect]
     Indication: PLEURAL EFFUSION
     Dosage: 25 MG/DAY
     Route: 048
     Dates: start: 20060107, end: 20060118
  8. PREDONINE [Suspect]
     Indication: INFLAMMATION
     Dosage: 5 MG, QD
     Route: 048
     Dates: start: 20060111, end: 20060115
  9. TAMIFLU [Suspect]
     Indication: INFLUENZA
     Dosage: 75 MG, BID
     Route: 048
     Dates: start: 20060118, end: 20060122
  10. ADELAVIN [Suspect]
     Indication: ALCOHOLIC LIVER DISEASE
     Dosage: 1 ML/DAY
     Route: 042
     Dates: start: 20060107, end: 20060220

REACTIONS (8)
  - ADENOMA BENIGN [None]
  - HAEMOGLOBIN DECREASED [None]
  - INTESTINAL POLYP [None]
  - IRON BINDING CAPACITY UNSATURATED INCREASED [None]
  - IRON DEFICIENCY ANAEMIA [None]
  - MEAN CELL VOLUME DECREASED [None]
  - POLYPECTOMY [None]
  - RED BLOOD CELL COUNT DECREASED [None]
